FAERS Safety Report 7038979-4 (Version None)
Quarter: 2010Q4

REPORT INFORMATION
  Report Type: 
  Country: None (occurrence: None)
  Receive Date: 20101012
  Receipt Date: 20101001
  Transmission Date: 20110411
  Serious: Yes (Other)
  Sender: FDA-Public Use
  Company Number: US-US-EMD SERONO, INC.-237034K09USA

PATIENT
  Sex: Female
  Weight: 127 kg

DRUGS (5)
  1. REBIF [Suspect]
     Indication: MULTIPLE SCLEROSIS
     Route: 058
     Dates: start: 20071212
  2. BACLOFEN [Concomitant]
     Indication: MUSCLE SPASTICITY
     Route: 048
  3. NEURONTIN [Concomitant]
     Indication: NEURALGIA
     Route: 065
  4. PROZAC [Concomitant]
     Indication: DEPRESSION
     Route: 065
  5. FISH OIL [Concomitant]

REACTIONS (4)
  - CEREBROVASCULAR ACCIDENT [None]
  - HYPERTENSION [None]
  - MULTIPLE SCLEROSIS [None]
  - RETINAL VEIN OCCLUSION [None]
